FAERS Safety Report 14475560 (Version 1)
Quarter: 2018Q1

REPORT INFORMATION
  Report Type: Spontaneous
  Country: US (occurrence: US)
  Receive Date: 20180131
  Receipt Date: 20180131
  Transmission Date: 20180509
  Serious: Yes (Disabling)
  Sender: FDA-Public Use
  Company Number: None

PATIENT
  Age: 75 Year
  Sex: Male
  Weight: 106.2 kg

DRUGS (17)
  1. ACID EASE [Concomitant]
  2. L-LYSINE [Concomitant]
     Active Substance: LYSINE
  3. NOW OINTMENTS [Concomitant]
  4. OXYCODONE [Concomitant]
     Active Substance: OXYCODONE
  5. FLEXERIL [Concomitant]
     Active Substance: CYCLOBENZAPRINE HYDROCHLORIDE
  6. PROBIOTIC [Concomitant]
     Active Substance: PROBIOTICS NOS
  7. POTASSIUM ASPOROTATE [Concomitant]
  8. MULTAQ [Suspect]
     Active Substance: DRONEDARONE
     Indication: ATRIAL FIBRILLATION
     Dosage: ?          QUANTITY:1 TABLET(S);?
     Route: 048
     Dates: start: 20180105, end: 20180111
  9. ESSENTIAL ENZYMES [Concomitant]
  10. ACETAMINOPHEN. [Concomitant]
     Active Substance: ACETAMINOPHEN
  11. BLUE EMU OINTMENT [Concomitant]
  12. HYLAND^S ARTHRITIS, BACKACHE, HAYFEVER, SINUS, AND UPSET STOMACH [Concomitant]
  13. FUROSEMIDE. [Concomitant]
     Active Substance: FUROSEMIDE
  14. SAW PALMETTO [Concomitant]
     Active Substance: HERBALS\SAW PALMETTO
  15. AFRIN ALLERGY SINUS NASAL SPRAY [Concomitant]
  16. ELIQUIS [Concomitant]
     Active Substance: APIXABAN
  17. METOPROLOL SUCC. ER [Concomitant]

REACTIONS (8)
  - Diarrhoea [None]
  - Muscular weakness [None]
  - Vision blurred [None]
  - Flatulence [None]
  - Bladder pain [None]
  - Abdominal pain [None]
  - Confusional state [None]
  - Sleep disorder [None]

NARRATIVE: CASE EVENT DATE: 20180110
